FAERS Safety Report 11230806 (Version 1)
Quarter: 2015Q2

REPORT INFORMATION
  Report Type: Spontaneous
  Country: US (occurrence: None)
  Receive Date: 20150629
  Receipt Date: 20150629
  Transmission Date: 20150821
  Serious: Yes (Disabling)
  Sender: FDA-Public Use
  Company Number: None

PATIENT
  Age: 44 Year
  Sex: Female
  Weight: 105.69 kg

DRUGS (1)
  1. COPAXONE [Suspect]
     Active Substance: GLATIRAMER ACETATE
     Indication: RELAPSING-REMITTING MULTIPLE SCLEROSIS
     Dosage: DAILY INJECTIONS ONCE DAILY GIVEN INTO/UNDER THE SKIN

REACTIONS (5)
  - Injection site reaction [None]
  - Therapy cessation [None]
  - Menstrual disorder [None]
  - Vaginal haemorrhage [None]
  - Weight increased [None]

NARRATIVE: CASE EVENT DATE: 20090119
